FAERS Safety Report 17143633 (Version 1)
Quarter: 2019Q4

REPORT INFORMATION
  Report Type: Spontaneous
  Country: US (occurrence: US)
  Receive Date: 20191212
  Receipt Date: 20191212
  Transmission Date: 20200122
  Serious: No
  Sender: FDA-Public Use
  Company Number: US-PFIZER INC-2019131892

PATIENT
  Age: 77 Year

DRUGS (1)
  1. NORPACE [Suspect]
     Active Substance: DISOPYRAMIDE PHOSPHATE
     Indication: ESSENTIAL HYPERTENSION
     Dosage: AT 150 MG, 2X/DAY (TAKE ONE CAPSULE BY MOUTH EVERY 12 HOURS)
     Route: 048
     Dates: start: 20190319

REACTIONS (5)
  - Speech disorder [Unknown]
  - Product use in unapproved indication [Unknown]
  - Dry mouth [Unknown]
  - Off label use [Unknown]
  - Aphonia [Unknown]

NARRATIVE: CASE EVENT DATE: 20190319
